FAERS Safety Report 12913174 (Version 1)
Quarter: 2016Q4

REPORT INFORMATION
  Report Type: Spontaneous
  Country: US (occurrence: US)
  Receive Date: 20161104
  Receipt Date: 20161104
  Transmission Date: 20170207
  Serious: No
  Sender: FDA-Public Use
  Company Number: US-ANACOR-2016ANA00258

PATIENT
  Sex: Female

DRUGS (1)
  1. KERYDIN [Suspect]
     Active Substance: TAVABOROLE
     Indication: ONYCHOMYCOSIS
     Dosage: UNK
     Dates: start: 2016

REACTIONS (3)
  - Drug hypersensitivity [Unknown]
  - Application site rash [Recovering/Resolving]
  - Ingrowing nail [Recovered/Resolved]

NARRATIVE: CASE EVENT DATE: 2016
